FAERS Safety Report 24705360 (Version 1)
Quarter: 2024Q4

REPORT INFORMATION
  Report Type: Spontaneous
  Country: US (occurrence: None)
  Receive Date: 20241205
  Receipt Date: 20241205
  Transmission Date: 20250114
  Serious: No
  Sender: Public
  Company Number: None

PATIENT
  Sex: Male

DRUGS (2)
  1. COAGADEX [Suspect]
     Active Substance: COAGULATION FACTOR X HUMAN
     Indication: Coagulopathy
     Dosage: OTHER QUANTITY : 1950 UNITS?FREQUENCY : TWICE A WEEK?OTHER ROUTE : SLOW IV PUSH?
     Route: 050
     Dates: start: 202112
  2. COAGADEX [Suspect]
     Active Substance: COAGULATION FACTOR X HUMAN
     Indication: Hereditary disorder

REACTIONS (1)
  - Gastrointestinal haemorrhage [None]
